FAERS Safety Report 7584049-6 (Version None)
Quarter: 2011Q2

REPORT INFORMATION
  Report Type: 
  Country: None (occurrence: None)
  Receive Date: 20110531
  Receipt Date: 20101116
  Transmission Date: 20111010
  Serious: Yes (Other)
  Sender: FDA-Public Use
  Company Number: 313648

PATIENT
  Age: 71 Year
  Sex: Female

DRUGS (4)
  1. NADOLOL [Concomitant]
  2. FLONASE [Concomitant]
  3. VAGIFEM [Suspect]
     Indication: PRODUCT USED FOR UNKNOWN INDICATION
     Dosage: 10 MCG, VAGINAL
     Route: 067
     Dates: start: 20100708, end: 20100812
  4. CLARITIN /00413701/ (GLICLAZIDE) [Concomitant]

REACTIONS (4)
  - VOMITING [None]
  - BLOOD PRESSURE INCREASED [None]
  - HEADACHE [None]
  - NAUSEA [None]
